FAERS Safety Report 11271276 (Version 1)
Quarter: 2015Q3

REPORT INFORMATION
  Report Type: Spontaneous
  Country: US (occurrence: US)
  Receive Date: 20150714
  Receipt Date: 20150714
  Transmission Date: 20151125
  Serious: Yes (Hospitalization)
  Sender: FDA-Public Use
  Company Number: PHHY2015US081745

PATIENT
  Age: 36 Year

DRUGS (3)
  1. PREDNISONE. [Concomitant]
     Active Substance: PREDNISONE
     Indication: SEROSITIS
     Dosage: 40 MG, UNK
     Route: 065
  2. HYDROXYCHLOROQUINE [Suspect]
     Active Substance: HYDROXYCHLOROQUINE
     Indication: SEROSITIS
     Route: 065
  3. PREDNISONE. [Concomitant]
     Active Substance: PREDNISONE
     Dosage: 120 MG, UNK
     Route: 065

REACTIONS (5)
  - Renal tubular necrosis [Unknown]
  - Thrombocytopenia [Recovering/Resolving]
  - Azotaemia [Recovering/Resolving]
  - Renal impairment [Recovering/Resolving]
  - Lupus nephritis [Unknown]
